FAERS Safety Report 7952048-8 (Version None)
Quarter: 2011Q4

REPORT INFORMATION
  Report Type: 
  Country: None (occurrence: None)
  Receive Date: 20111201
  Receipt Date: 20111122
  Transmission Date: 20120403
  Serious: Yes (Hospitalization)
  Sender: FDA-Public Use
  Company Number: JP-AMGEN-JPNSP2011055006

PATIENT
  Age: 61 Year
  Sex: Female

DRUGS (6)
  1. PROMACTA [Concomitant]
     Route: 048
     Dates: start: 20111103
  2. ROMIPLATE [Suspect]
     Route: 058
     Dates: start: 20111012, end: 20111019
  3. ANABOLIC STEROIDS [Concomitant]
     Route: 065
  4. ROMIPLATE [Suspect]
     Indication: IDIOPATHIC THROMBOCYTOPENIC PURPURA
     Dosage: 3 MUG/KG, UNK
     Route: 058
     Dates: start: 20110815, end: 20111019
  5. ROMIPLATE [Suspect]
     Route: 058
  6. PROMACTA [Concomitant]
     Route: 048
     Dates: start: 20111108

REACTIONS (3)
  - RENAL IMPAIRMENT [None]
  - THROMBOCYTOPENIA [None]
  - HEPATIC FUNCTION ABNORMAL [None]
